FAERS Safety Report 14672448 (Version 1)
Quarter: 2018Q1

REPORT INFORMATION
  Report Type: Spontaneous
  Country: US (occurrence: US)
  Receive Date: 20180323
  Receipt Date: 20180323
  Transmission Date: 20180509
  Serious: No
  Sender: FDA-Public Use
  Company Number: US-PFIZER INC-2018113766

PATIENT
  Age: 59 Year
  Sex: Female
  Weight: 109.3 kg

DRUGS (4)
  1. CELEBREX [Suspect]
     Active Substance: CELECOXIB
     Indication: NECK PAIN
     Dosage: 200 MG, 2X/DAY
     Route: 048
     Dates: start: 2018, end: 2018
  2. CELEBREX [Suspect]
     Active Substance: CELECOXIB
     Indication: ARTHROPATHY
     Dosage: 200 MG, 1X/DAY
     Route: 048
     Dates: start: 201712, end: 20180102
  3. LACTOSE [Suspect]
     Active Substance: LACTOSE
     Dosage: UNK
  4. CELEBREX [Suspect]
     Active Substance: CELECOXIB
     Indication: ARTHRALGIA
     Dosage: 200 MG, 1X/DAY
     Route: 048
     Dates: start: 2018

REACTIONS (9)
  - Rash pustular [Unknown]
  - Allergic reaction to excipient [Unknown]
  - Musculoskeletal stiffness [Unknown]
  - Rash papular [Unknown]
  - Feeling abnormal [Unknown]
  - Exostosis [Unknown]
  - Condition aggravated [Unknown]
  - Intervertebral disc space narrowing [Unknown]
  - Musculoskeletal pain [Unknown]

NARRATIVE: CASE EVENT DATE: 20171225
